FAERS Safety Report 4408851-4 (Version None)
Quarter: 2004Q2

REPORT INFORMATION
  Report Type: 
  Country: None (occurrence: None)
  Receive Date: 20040618
  Receipt Date: 20040416
  Transmission Date: 20050107
  Serious: No
  Sender: FDA-Public Use
  Company Number: US-JNJFOC-20040404530

PATIENT
  Age: 17 Year
  Sex: Female

DRUGS (1)
  1. ORTHO EVRA [Suspect]
     Indication: CONVULSION
     Dosage: 1 DOSE(S), 12 IN 13 WEEK, TRANSDERMAL
     Route: 062

REACTIONS (1)
  - METRORRHAGIA [None]
